FAERS Safety Report 20421510 (Version 2)
Quarter: 2022Q1

REPORT INFORMATION
  Report Type: Spontaneous
  Country: ES (occurrence: ES)
  Receive Date: 20220203
  Receipt Date: 20220210
  Transmission Date: 20220424
  Serious: Yes (Life-Threatening, Hospitalization)
  Sender: FDA-Public Use
  Company Number: ES-ELI_LILLY_AND_COMPANY-ES202201010561

PATIENT
  Sex: Female
  Weight: 72 kg

DRUGS (13)
  1. TERIPARATIDE [Suspect]
     Active Substance: TERIPARATIDE
     Indication: Hypoparathyroidism
     Dosage: UNK UNK, UNKNOWN
     Route: 058
     Dates: start: 2015
  2. TERIPARATIDE [Suspect]
     Active Substance: TERIPARATIDE
     Dosage: UNK UNK, BID
     Route: 065
  3. RENVELA [Concomitant]
     Active Substance: SEVELAMER CARBONATE
     Indication: Hypoparathyroidism
     Dosage: 2.4 G, DAILY
  4. ROCALTROL [Concomitant]
     Active Substance: CALCITRIOL
     Indication: Hypoparathyroidism
     Dosage: 0.5 UG, TID
  5. CALCIUM CARBONATE\CHOLECALCIFEROL [Concomitant]
     Active Substance: CALCIUM CARBONATE\CHOLECALCIFEROL
     Indication: Hypoparathyroidism
     Dosage: (1000 MG/880 IU) 1 DOSAGE FORM, DAILY
  6. ATORVASTATIN [Concomitant]
     Active Substance: ATORVASTATIN
     Indication: Hypercholesterolaemia
     Dosage: 20 MG, DAILY
  7. CALCIFEDIOL [Concomitant]
     Active Substance: CALCIFEDIOL
     Indication: Hypoparathyroidism
     Dosage: 0.266 MG, 2/M
  8. BRINTELLIX [Concomitant]
     Active Substance: VORTIOXETINE HYDROBROMIDE
     Indication: Depression
     Dosage: UNK, DAILY
  9. RIVOTRIL [Concomitant]
     Active Substance: CLONAZEPAM
     Indication: Epilepsy
     Dosage: AT REQUEST
  10. VALPROIC ACID [Concomitant]
     Active Substance: VALPROIC ACID
     Indication: Epilepsy
     Dosage: 500 MG IN THE MORNING AND AT NIGHT, AND 300 MG IN THE AFTERNOON
  11. FORTASEC FLAS [Concomitant]
     Indication: Diarrhoea
     Dosage: OCCASIONALLY
  12. ANTALGIN [NAPROXEN SODIUM] [Concomitant]
     Indication: Migraine
     Dosage: 550 MG OCCASIONALLY
  13. GABAPENTIN [Concomitant]
     Active Substance: GABAPENTIN
     Indication: Epilepsy
     Dosage: 600 MG, TID

REACTIONS (6)
  - Cardio-respiratory arrest [Unknown]
  - Blood calcium decreased [Unknown]
  - Incorrect product administration duration [Unknown]
  - Inappropriate schedule of product administration [Unknown]
  - Prescribed overdose [Unknown]
  - Off label use [Unknown]
